FAERS Safety Report 6461335-4 (Version None)
Quarter: 2009Q4

REPORT INFORMATION
  Report Type: 
  Country: None (occurrence: None)
  Receive Date: 20091130
  Receipt Date: 20091120
  Transmission Date: 20100525
  Serious: Yes (Hospitalization, Other)
  Sender: FDA-Public Use
  Company Number: CA-NOVOPROD-301066

PATIENT
  Age: 48 Year
  Sex: Female
  Weight: 86 kg

DRUGS (3)
  1. VAGIFEM [Suspect]
     Indication: DRUG USE FOR UNKNOWN INDICATION
     Dosage: UNK
     Dates: start: 20090601, end: 20091101
  2. MULTI-VITAMINS VITAFIT [Concomitant]
  3. PANTOPRAZOLE [Concomitant]

REACTIONS (1)
  - ANAPHYLACTOID REACTION [None]
